FAERS Safety Report 19064880 (Version 11)
Quarter: 2021Q3

REPORT INFORMATION
  Report Type: Report from Study
  Country: FR (occurrence: FR)
  Receive Date: 20210326
  Receipt Date: 20210706
  Transmission Date: 20211014
  Serious: Yes (Death, Life-Threatening, Hospitalization, Other)
  Sender: FDA-Public Use
  Company Number: FR-BRISTOL-MYERS SQUIBB COMPANY-BMS-2021-023997

PATIENT
  Age: 78 Year
  Sex: Male
  Weight: 74 kg

DRUGS (14)
  1. XATRAL [Concomitant]
     Active Substance: ALFUZOSIN
     Indication: PRODUCT USED FOR UNKNOWN INDICATION
     Dosage: 10 MILLIGRAM
     Route: 048
     Dates: start: 20210217
  2. AVODART [Concomitant]
     Active Substance: DUTASTERIDE
     Indication: PRODUCT USED FOR UNKNOWN INDICATION
     Dosage: 0.5 MILLIGRAM
     Route: 048
  3. MONOPROST [Concomitant]
     Active Substance: LATANOPROST
     Indication: PRODUCT USED FOR UNKNOWN INDICATION
     Dosage: 50 MICROGRAM
     Route: 031
  4. INNOHEP [Concomitant]
     Active Substance: TINZAPARIN SODIUM
     Indication: PRODUCT USED FOR UNKNOWN INDICATION
     Dosage: 1 DOSAGE FORM
     Route: 058
     Dates: start: 20210217
  5. SILODYX [Concomitant]
     Active Substance: SILODOSIN
     Indication: PRODUCT USED FOR UNKNOWN INDICATION
     Dosage: 8 MILLIGRAM
     Route: 048
  6. RELATLIMAB [Suspect]
     Active Substance: RELATLIMAB
     Indication: MALIGNANT MELANOMA
     Dosage: 160 MILLIGRAM
     Route: 042
     Dates: start: 20201125
  7. NIVOLUMAB [Suspect]
     Active Substance: NIVOLUMAB
     Indication: MALIGNANT MELANOMA
     Dosage: 480 MILLIGRAM
     Route: 042
     Dates: start: 20201125
  8. PANTOPRAZOLE [Concomitant]
     Active Substance: PANTOPRAZOLE
     Indication: PRODUCT USED FOR UNKNOWN INDICATION
     Dosage: 20 MILLIGRAM
     Route: 048
     Dates: start: 20210212
  9. AZYTER [Concomitant]
     Active Substance: AZITHROMYCIN ANHYDROUS
     Indication: PRODUCT USED FOR UNKNOWN INDICATION
     Dosage: UNK
     Route: 047
     Dates: start: 20201223
  10. COVID?19 VACCINE [Concomitant]
     Indication: PROPHYLAXIS
     Dosage: UNK
     Route: 030
     Dates: start: 20210122
  11. LINRODOSTAT MESYLATE [Suspect]
     Active Substance: LINRODOSTAT MESYLATE
     Indication: MALIGNANT MELANOMA
     Dosage: 100 MILLIGRAM
     Route: 048
     Dates: start: 20201125
  12. PREDNISOLONE. [Concomitant]
     Active Substance: PREDNISOLONE
     Indication: PRODUCT USED FOR UNKNOWN INDICATION
     Dosage: 140 MILLIGRAM
     Route: 048
     Dates: start: 20210218
  13. RAMIPRIL. [Concomitant]
     Active Substance: RAMIPRIL
     Indication: PRODUCT USED FOR UNKNOWN INDICATION
     Dosage: 1.25 MILLIGRAM
     Route: 048
  14. POVIDONE [Concomitant]
     Active Substance: POVIDONE
     Indication: PRODUCT USED FOR UNKNOWN INDICATION
     Dosage: 1 DOSAGE FORM
     Route: 047
     Dates: start: 20201223

REACTIONS (4)
  - Bacteraemia [Not Recovered/Not Resolved]
  - Hypercalcaemia [Recovered/Resolved]
  - Immune-mediated encephalopathy [Fatal]
  - Retroperitoneal haematoma [Fatal]

NARRATIVE: CASE EVENT DATE: 20210309
